FAERS Safety Report 10255881 (Version 1)
Quarter: 2014Q2

REPORT INFORMATION
  Report Type: Spontaneous
  Country: US (occurrence: US)
  Receive Date: 20140624
  Receipt Date: 20140624
  Transmission Date: 20141212
  Serious: Yes (Other)
  Sender: FDA-Public Use
  Company Number: US-GLAXOSMITHKLINE-A0941921A

PATIENT
  Sex: Female
  Weight: 120 kg

DRUGS (14)
  1. AVANDIA [Suspect]
     Indication: DIABETES MELLITUS
     Dosage: 8MG TWICE PER DAY
     Route: 048
     Dates: start: 2005, end: 2009
  2. ADVAIR [Concomitant]
  3. ALUPENT [Concomitant]
  4. FELODIPINE [Concomitant]
  5. METFORMIN [Concomitant]
  6. ELMIRON [Concomitant]
  7. LODRANE [Concomitant]
  8. GEMFIBROZIL [Concomitant]
  9. SINGULAIR [Concomitant]
  10. NEXIUM [Concomitant]
  11. BRETHINE [Concomitant]
  12. DITROPAN XL [Concomitant]
  13. ZOCOR [Concomitant]
  14. XOLAIR [Concomitant]

REACTIONS (2)
  - Cardiac failure congestive [Unknown]
  - Cardiomyopathy [Unknown]
